FAERS Safety Report 9681390 (Version 1)
Quarter: 2013Q4

REPORT INFORMATION
  Report Type: Spontaneous
  Country: FR (occurrence: None)
  Receive Date: 20131107
  Receipt Date: 20131107
  Transmission Date: 20140711
  Serious: Yes (Other)
  Sender: FDA-Public Use
  Company Number: ACO_37380_2013

PATIENT
  Age: 47 Year
  Sex: Male
  Weight: 65 kg

DRUGS (3)
  1. FAMPYRA (DALFAMPRIDINE) TABLET, 10MG [Suspect]
     Indication: GAIT DISTURBANCE
     Route: 048
     Dates: start: 20130613, end: 20130621
  2. LIORESAL (BACLOFEN) [Concomitant]
  3. TAMSULOSIN (TAMSULOSIN) [Concomitant]

REACTIONS (4)
  - Motor dysfunction [None]
  - Condition aggravated [None]
  - Walking disability [None]
  - Fatigue [None]
